FAERS Safety Report 17840653 (Version 1)
Quarter: 2020Q2

REPORT INFORMATION
  Report Type: Spontaneous
  Country: US (occurrence: US)
  Receive Date: 20200529
  Receipt Date: 20200529
  Transmission Date: 20200714
  Serious: Yes (Life-Threatening, Hospitalization, Other)
  Sender: FDA-Public Use
  Company Number: None

PATIENT
  Age: 62 Year
  Sex: Female

DRUGS (4)
  1. CARBOPLATIN. [Suspect]
     Active Substance: CARBOPLATIN
     Dates: start: 20200505, end: 20200505
  2. DEXAMETHASONE. [Concomitant]
     Active Substance: DEXAMETHASONE
     Dates: start: 20200505, end: 20200505
  3. PALONOSETRON. [Concomitant]
     Active Substance: PALONOSETRON HYDROCHLORIDE
     Dates: start: 20200505, end: 20200505
  4. APREPITANT. [Concomitant]
     Active Substance: APREPITANT
     Dates: start: 20200505, end: 20200505

REACTIONS (5)
  - Cardiac arrest [None]
  - Near death experience [None]
  - Unresponsive to stimuli [None]
  - Pulse absent [None]
  - Flushing [None]

NARRATIVE: CASE EVENT DATE: 20200515
